FAERS Safety Report 15794954 (Version 2)
Quarter: 2021Q2

REPORT INFORMATION
  Report Type: Spontaneous
  Country: US (occurrence: US)
  Receive Date: 20190107
  Receipt Date: 20210517
  Transmission Date: 20210716
  Serious: Yes (Disabling)
  Sender: FDA-Public Use
  Company Number: US-TEVA-2019-US-994718

PATIENT
  Age: 55 Year
  Sex: Female
  Weight: 88.45 kg

DRUGS (17)
  1. CYTOXAN [Suspect]
     Active Substance: CYCLOPHOSPHAMIDE
     Indication: BREAST CANCER FEMALE
     Dosage: NO OF CYCLES: 06; FREQUENCY: THREE WEEKS; DOSAGE: 135MG
     Route: 065
     Dates: start: 20150618, end: 20150930
  2. CYMBALTA [Concomitant]
     Active Substance: DULOXETINE HYDROCHLORIDE
     Dosage: FORM STRENGTH: 20MG; 1 CAPSULE TWICE A DAY
     Route: 065
     Dates: start: 201212
  3. ZOFRAN ODT [Concomitant]
     Active Substance: ONDANSETRON HYDROCHLORIDE
     Dosage: FORM STRENGTH: 8MG; FREQUENCY: 1 TABLET ON THE TONGUE AND ALLOW TO DISSOLVE; EVERY 8 HOURS PRN
     Route: 065
  4. DOCETAXEL SAGENT [Suspect]
     Active Substance: DOCETAXEL
     Dosage: NO OF CYCLES: 06, FREQUENCY: EVERY THREE WEEKS; DOSAGE: 135MG
     Route: 065
     Dates: start: 20150618, end: 20150930
  5. DOCETAXEL HOSPIRA [Suspect]
     Active Substance: DOCETAXEL
     Dosage: NO OF CYCLES: 06; FREQUENCY: THREE WEEKS; DOSAGE: 135MG
     Route: 065
     Dates: start: 20150618, end: 20150930
  6. DOCETAXEL SAGENT [Suspect]
     Active Substance: DOCETAXEL
     Indication: BREAST CANCER FEMALE
     Dosage: NO OF CYCLES: 06, FREQUENCY: EVERY THREE WEEKS; DOSAGE: 135MG
     Route: 065
     Dates: start: 20150618, end: 20150930
  7. DOCETAXEL SANDOZ [Suspect]
     Active Substance: DOCETAXEL
     Dosage: NO OF CYCLES: 06; FREQUENCY: THREE WEEKS; DOSAGE: 135MG
     Route: 065
     Dates: start: 20150618, end: 20150930
  8. ADRIAMYCIN [Suspect]
     Active Substance: DOXORUBICIN HYDROCHLORIDE
     Indication: BREAST CANCER FEMALE
     Dosage: NO OF CYCLES: 06; FREQUENCY: THREE WEEKS; DOSAGE: 135MG
     Route: 065
     Dates: start: 20150618, end: 20150930
  9. DOCETAXEL ACCORD [Suspect]
     Active Substance: DOCETAXEL
     Dosage: NO OF CYCLES: 06; FREQUENCY: THREE WEEKS; DOSAGE: 135MG
     Route: 065
     Dates: start: 20150618, end: 20150930
  10. COMPAZINE [Concomitant]
     Active Substance: PROCHLORPERAZINE MALEATE
     Dosage: FORM STRENGTH: 10MG;
     Route: 065
  11. DOCETAXEL SANDOZ [Suspect]
     Active Substance: DOCETAXEL
     Indication: BREAST CANCER FEMALE
     Dosage: NO OF CYCLES: 06; FREQUENCY: THREE WEEKS; DOSAGE: 135MG
     Route: 065
     Dates: start: 20150618, end: 20150930
  12. DOCETAXEL ACTAVIS [Suspect]
     Active Substance: DOCETAXEL
     Indication: BREAST CANCER FEMALE
     Dosage: NO OF CYCLES: 06, FREQUENCY: EVERY THREE WEEKS; DOSAGE: 135MG
     Route: 065
     Dates: start: 20150618, end: 20150930
  13. DOCETAXEL HOSPIRA [Suspect]
     Active Substance: DOCETAXEL
     Indication: BREAST CANCER FEMALE
     Dosage: NO OF CYCLES: 06; FREQUENCY: THREE WEEKS; DOSAGE: 135MG
     Route: 065
     Dates: start: 20150618, end: 20150930
  14. DOCETAXEL ACCORD [Suspect]
     Active Substance: DOCETAXEL
     Indication: BREAST CANCER FEMALE
     Dosage: NO OF CYCLES: 06; FREQUENCY: THREE WEEKS; DOSAGE: 135MG
     Route: 065
     Dates: start: 20150618, end: 20150930
  15. NEULASTA [Concomitant]
     Active Substance: PEGFILGRASTIM
     Route: 065
  16. DEXAMETHASONE. [Concomitant]
     Active Substance: DEXAMETHASONE
     Dosage: STRENGTH: 4MG; FREQUENCY: 4MG TABLET 2 TABLETS TWICE A DAY
     Route: 065
  17. CALCIUM+D3 [Concomitant]
     Active Substance: CALCIUM\CHOLECALCIFEROL
     Dosage: FREQUENCY: 1 TABLET WITH MEALS TWICE A DAY
     Route: 065

REACTIONS (5)
  - Madarosis [Not Recovered/Not Resolved]
  - Alopecia areata [Not Recovered/Not Resolved]
  - Hair colour changes [Not Recovered/Not Resolved]
  - Fatigue [Not Recovered/Not Resolved]
  - Hair texture abnormal [Not Recovered/Not Resolved]

NARRATIVE: CASE EVENT DATE: 201506
